FAERS Safety Report 9787968 (Version 1)
Quarter: 2013Q4

REPORT INFORMATION
  Report Type: Spontaneous
  Country: BR (occurrence: BR)
  Receive Date: 20131230
  Receipt Date: 20131230
  Transmission Date: 20140711
  Serious: Yes (Hospitalization)
  Sender: FDA-Public Use
  Company Number: BR-ASTELLAS-2013US013458

PATIENT
  Age: 63 Year
  Sex: Male

DRUGS (1)
  1. TARCEVA [Suspect]
     Indication: LUNG NEOPLASM MALIGNANT
     Dosage: 1 DF, UID/QD
     Route: 065
     Dates: start: 201301

REACTIONS (8)
  - Pleural effusion [Unknown]
  - Lung infection [Not Recovered/Not Resolved]
  - Blood glucose increased [Unknown]
  - Headache [Recovered/Resolved]
  - Diabetes mellitus [Unknown]
  - Diarrhoea [Recovered/Resolved]
  - Cough [Recovered/Resolved]
  - Skin exfoliation [Recovered/Resolved]
